FAERS Safety Report 8021744-9 (Version None)
Quarter: 2012Q1

REPORT INFORMATION
  Report Type: 
  Country: None (occurrence: None)
  Receive Date: 20120104
  Receipt Date: 20111226
  Transmission Date: 20120608
  Serious: Yes (Hospitalization)
  Sender: FDA-Public Use
  Company Number: JP-VERTEX PHARMACEUTICALS INC.-AE-2011-005759

PATIENT
  Age: 58 Year
  Sex: Male

DRUGS (3)
  1. RIBARIVIN [Concomitant]
     Indication: HEPATITIS C
     Route: 048
  2. INTERFERON [Concomitant]
     Indication: HEPATITIS C
  3. TELAVIC (TELAPREVIR) [Suspect]
     Indication: HEPATITIS C
     Route: 048
     Dates: start: 20111221

REACTIONS (2)
  - RASH [None]
  - PYREXIA [None]
